FAERS Safety Report 10155983 (Version 2)
Quarter: 2014Q2

REPORT INFORMATION
  Report Type: Spontaneous
  Country: US (occurrence: US)
  Receive Date: 20140506
  Receipt Date: 20140529
  Transmission Date: 20141212
  Serious: No
  Sender: FDA-Public Use
  Company Number: US-BAXTER-2014BAX022656

PATIENT
  Age: 67 Year
  Sex: Female
  Weight: 64.01 kg

DRUGS (5)
  1. 0.9% SODIUM CHLORIDE INJECTION [Suspect]
     Indication: ACCIDENTAL EXPOSURE TO PRODUCT
     Route: 061
     Dates: start: 20140310
  2. VP-16 [Suspect]
     Indication: ACCIDENTAL EXPOSURE TO PRODUCT
     Route: 061
     Dates: start: 20140310
  3. VP-16 [Suspect]
     Indication: LUNG NEOPLASM MALIGNANT
  4. CARBOPLATIN [Suspect]
     Indication: ACCIDENTAL EXPOSURE TO PRODUCT
     Route: 061
     Dates: start: 20140310
  5. CARBOPLATIN [Suspect]
     Indication: LUNG NEOPLASM MALIGNANT

REACTIONS (2)
  - Accidental exposure to product [Recovered/Resolved]
  - No adverse event [Recovered/Resolved]
